FAERS Safety Report 5224260-2 (Version None)
Quarter: 2007Q1

REPORT INFORMATION
  Report Type: 
  Country: None (occurrence: None)
  Receive Date: 20070130
  Receipt Date: 20070119
  Transmission Date: 20070707
  Serious: Yes (Other)
  Sender: FDA-Public Use
  Company Number: US-ELI_LILLY_AND_COMPANY-US200701004040

PATIENT
  Age: 54 Year
  Sex: Male

DRUGS (5)
  1. CIALIS [Suspect]
     Indication: ERECTILE DYSFUNCTION
     Dates: start: 20040101, end: 20060101
  2. SYNTHROID [Concomitant]
     Indication: HYPOTHYROIDISM
     Dosage: 0.2 UNK, UNKNOWN
  3. CLARINEX [Concomitant]
     Dosage: UNK, UNKNOWN
  4. NASAL SPRAY [Concomitant]
     Dosage: UNK, UNKNOWN
  5. ASTELIN [Concomitant]
     Indication: POLYP
     Dosage: UNK, UNKNOWN

REACTIONS (15)
  - BLINDNESS [None]
  - CEREBRAL CALCIFICATION [None]
  - CEREBROVASCULAR ACCIDENT [None]
  - DYSSTASIA [None]
  - HEADACHE [None]
  - HYPERTENSION [None]
  - INFARCTION [None]
  - ISCHAEMIC CEREBRAL INFARCTION [None]
  - LACUNAR INFARCTION [None]
  - MENINGIOMA [None]
  - NERVOUS SYSTEM DISORDER [None]
  - POSTURE ABNORMAL [None]
  - SENSORY DISTURBANCE [None]
  - VISUAL DISTURBANCE [None]
  - VOMITING [None]
